FAERS Safety Report 8733883 (Version 2)
Quarter: 2012Q4

REPORT INFORMATION
  Report Type: 
  Country: CA (occurrence: CA)
  Receive Date: 20120821
  Receipt Date: 20121120
  Transmission Date: 20130627
  Serious: Yes (Other)
  Sender: FDA-Public Use
  Company Number: CA-NAPPMUNDI-CAN-2012-0002949

PATIENT
  Age: 43 Year
  Sex: Female
  Weight: 90.7 kg

DRUGS (9)
  1. OXYNEO 60 MG [Suspect]
     Indication: BACK PAIN
     Dosage: 1 tablet, bid
     Route: 065
     Dates: start: 20120426
  2. OXYNEO 60 MG [Suspect]
     Indication: PAIN IN EXTREMITY
  3. SUPEUDOL [Suspect]
     Indication: BREAKTHROUGH PAIN
     Dosage: 30 mg, bid
     Route: 065
  4. SUPEUDOL [Suspect]
     Dosage: 20 mg, hs
     Route: 048
  5. DICETEL [Concomitant]
     Indication: COLITIS
     Dosage: UNK, prn
  6. SULFASALAZINE [Concomitant]
     Indication: COLITIS
     Dosage: UNK, prn
  7. IBUPROFEN [Concomitant]
     Indication: INFLAMMATION
     Dosage: 200 mg, prn
  8. ACETAMINOPHEN [Concomitant]
     Indication: HEADACHE
     Dosage: 1000 mg, daily
  9. PARIET [Concomitant]
     Indication: PRODUCT USED FOR UNKNOWN INDICATION

REACTIONS (14)
  - Homicidal ideation [Recovered/Resolved]
  - Product substitution issue [Not Recovered/Not Resolved]
  - Drug ineffective [Recovered/Resolved]
  - Screaming [Not Recovered/Not Resolved]
  - Weight increased [Not Recovered/Not Resolved]
  - Anger [Not Recovered/Not Resolved]
  - Fluid retention [Not Recovered/Not Resolved]
  - Hyperhidrosis [Not Recovered/Not Resolved]
  - Mood swings [Recovered/Resolved]
  - Nausea [Recovered/Resolved]
  - Abdominal discomfort [Recovered/Resolved]
  - Emotional distress [Recovered/Resolved]
  - Headache [Recovered/Resolved]
  - Malaise [Recovered/Resolved]
